FAERS Safety Report 9721858 (Version 1)
Quarter: 2013Q4

REPORT INFORMATION
  Report Type: Spontaneous
  Country: GB (occurrence: GB)
  Receive Date: 20131201
  Receipt Date: 20131201
  Transmission Date: 20140711
  Serious: Yes (Death)
  Sender: FDA-Public Use
  Company Number: GB-ASTRAZENECA-2001AP01628

PATIENT
  Age: 50 Year
  Sex: Male

DRUGS (8)
  1. PROPOFOL [Suspect]
     Indication: ANAESTHESIA
     Route: 042
     Dates: start: 20010310
  2. FENTANYL [Suspect]
     Route: 065
  3. NEOSTIGMINE [Suspect]
     Route: 065
  4. HYPNOVEL [Suspect]
     Indication: ANAESTHESIA
     Route: 065
     Dates: start: 20010310
  5. VECURONIUM BROMIDE [Suspect]
     Indication: ANAESTHESIA
     Route: 065
     Dates: start: 20010310
  6. ENFLURANE [Suspect]
     Indication: ANAESTHESIA
     Route: 065
     Dates: start: 20010310
  7. EPHEDRINE [Suspect]
     Indication: ANAESTHESIA
     Route: 065
     Dates: start: 20010310
  8. GLYCOPYRRONIUM BROMIDE [Suspect]
     Route: 065

REACTIONS (1)
  - Cardiac arrest [Fatal]
